FAERS Safety Report 8461200-7 (Version None)
Quarter: 2012Q2

REPORT INFORMATION
  Report Type: 
  Country: None (occurrence: None)
  Receive Date: 20120323
  Receipt Date: 20110614
  Transmission Date: 20120825
  Serious: Yes (Hospitalization)
  Sender: FDA-Public Use
  Company Number: 163-21880-11061893

PATIENT
  Age: 82 Year
  Sex: Female

DRUGS (8)
  1. SODIUM BICARB (SODIUM BICARBONATE) [Concomitant]
  2. DIGOXIN [Concomitant]
  3. PHENERGAN HCL [Concomitant]
  4. REVLIMID [Suspect]
     Indication: MULTIPLE MYELOMA
     Dosage: 5 MG, 1 IN 1 D, PO
     Route: 048
     Dates: start: 20100825
  5. SENOKOT [Concomitant]
  6. IRON (IRON) [Concomitant]
  7. CARDIZEM [Concomitant]
  8. ZOFRAN [Concomitant]

REACTIONS (2)
  - DIARRHOEA [None]
  - VOMITING [None]
